FAERS Safety Report 15235341 (Version 1)
Quarter: 2018Q3

REPORT INFORMATION
  Report Type: Spontaneous
  Country: US (occurrence: US)
  Receive Date: 20180803
  Receipt Date: 20180803
  Transmission Date: 20181010
  Serious: No
  Sender: FDA-Public Use
  Company Number: US-SUN PHARMACEUTICAL INDUSTRIES LTD-2018US-177433

PATIENT
  Age: 72 Year
  Sex: Female

DRUGS (1)
  1. BROMSITE [Suspect]
     Active Substance: BROMFENAC SODIUM
     Indication: PRODUCT USED FOR UNKNOWN INDICATION
     Dosage: UNK
     Route: 031
     Dates: start: 20180606

REACTIONS (5)
  - Product leakage [Unknown]
  - Poor quality drug administered [Unknown]
  - Wrong technique in product usage process [Unknown]
  - Eye pain [Unknown]
  - Product deposit [Unknown]

NARRATIVE: CASE EVENT DATE: 20180606
